FAERS Safety Report 21849242 (Version 3)
Quarter: 2023Q1

REPORT INFORMATION
  Report Type: Spontaneous
  Country: US (occurrence: US)
  Receive Date: 20230111
  Receipt Date: 20230309
  Transmission Date: 20230417
  Serious: No
  Sender: FDA-Public Use
  Company Number: US-PFIZER INC-PV202300002150

PATIENT
  Age: 25 Year
  Sex: Female

DRUGS (1)
  1. XELJANZ XR [Suspect]
     Active Substance: TOFACITINIB CITRATE
     Dosage: UNK

REACTIONS (9)
  - Illness [Unknown]
  - Pyrexia [Unknown]
  - Respiratory syncytial virus infection [Unknown]
  - Nasal congestion [Unknown]
  - Chest discomfort [Unknown]
  - Fatigue [Unknown]
  - Viral infection [Unknown]
  - Blood cholesterol increased [Unknown]
  - Product dose omission issue [Unknown]
